FAERS Safety Report 7937472-1 (Version None)
Quarter: 2011Q4

REPORT INFORMATION
  Report Type: 
  Country: None (occurrence: None)
  Receive Date: 20111123
  Receipt Date: 20111118
  Transmission Date: 20120403
  Serious: Yes (Life-Threatening, Hospitalization, Other)
  Sender: FDA-Public Use
  Company Number: PHHY2011DE83217

PATIENT
  Age: 56 Year
  Sex: Male
  Weight: 60 kg

DRUGS (4)
  1. VOLTAREN [Suspect]
     Indication: GOUT
     Dosage: 50 MG, TID
     Route: 048
     Dates: start: 20110502, end: 20110615
  2. RAMIPRIL [Suspect]
     Indication: HYPERTENSION
     Dosage: 5 MG, QD
     Route: 048
     Dates: start: 20110509, end: 20110516
  3. MICARDIS [Suspect]
     Indication: HYPERTENSION
     Dosage: 80 MG, QD
     Route: 048
     Dates: start: 20110516, end: 20110615
  4. ALLOPURINOL [Suspect]
     Indication: GOUT
     Dosage: 0.5 DF, QD
     Route: 048
     Dates: start: 20110502, end: 20110515

REACTIONS (5)
  - BLOOD CREATININE INCREASED [None]
  - GLOMERULAR FILTRATION RATE DECREASED [None]
  - BLOOD UREA INCREASED [None]
  - RENAL FAILURE ACUTE [None]
  - MESANGIOPROLIFERATIVE GLOMERULONEPHRITIS [None]
